FAERS Safety Report 4781045-9 (Version None)
Quarter: 2005Q3

REPORT INFORMATION
  Report Type: 
  Country: None (occurrence: None)
  Receive Date: 20050926
  Receipt Date: 20050916
  Transmission Date: 20060218
  Serious: Yes (Other)
  Sender: FDA-Public Use
  Company Number: 26965

PATIENT
  Age: 82 Year
  Sex: Male

DRUGS (1)
  1. IMIQUIMOD (IMIQUIMOD) [Suspect]
     Indication: METASTATIC MALIGNANT MELANOMA
     Dosage: 1 UNSPEC. (1 UNSPEC., 5 IN 1 WEEK(S); TOPICAL
     Route: 061

REACTIONS (5)
  - APPLICATION SITE ERYTHEMA [None]
  - APPLICATION SITE IRRITATION [None]
  - METASTASES TO LYMPH NODES [None]
  - METASTASES TO SKIN [None]
  - NEOPLASM SKIN [None]
